FAERS Safety Report 7391932 (Version 4)
Quarter: 2012Q4

REPORT INFORMATION
  Report Type: 
  Country: US (occurrence: US)
  Receive Date: 20100518
  Receipt Date: 20121106
  Transmission Date: 20130627
  Serious: Yes (Disabling, Other)
  Sender: FDA-Public Use
  Company Number: PHEH2010US03451

PATIENT
  Sex: Male

DRUGS (8)
  1. TEGRETOL [Suspect]
     Indication: CONVULSION
     Dates: start: 2007
  2. VIMPAT [Concomitant]
     Dosage: 150 mg, BID
     Route: 048
  3. ZOLOFT [Concomitant]
     Dosage: 100 mg, BID
  4. DEPAKOTE [Concomitant]
     Dosage: 500 mg, BID
  5. AMBIEN [Concomitant]
     Dosage: 5 mg,
     Route: 048
  6. CAUMADIN [Concomitant]
     Dosage: 4 mg,
  7. ASPIRIN [Concomitant]
     Dosage: 81 mg, QD
  8. XANAX [Concomitant]
     Dosage: 0.25 mg, BID
     Route: 048

REACTIONS (50)
  - Toxic epidermal necrolysis [Unknown]
  - Stevens-Johnson syndrome [Unknown]
  - Injury [Unknown]
  - Deformity [Unknown]
  - Pain [Unknown]
  - Disability [Unknown]
  - Mental disorder [Unknown]
  - Anhedonia [Unknown]
  - Anxiety [Unknown]
  - Rash [Unknown]
  - Pruritus [Unknown]
  - Skin discolouration [Unknown]
  - Skin exfoliation [Unknown]
  - Alopecia [Unknown]
  - Nail disorder [Unknown]
  - Pigmentation disorder [Unknown]
  - Urticaria [Unknown]
  - Swelling [Unknown]
  - Skin lesion [Unknown]
  - Skin burning sensation [Unknown]
  - Mucous membrane disorder [Unknown]
  - Scar [Unknown]
  - Blindness [Unknown]
  - Internal injury [Unknown]
  - Hypersensitivity [Unknown]
  - Dermal cyst [Unknown]
  - Hallucination, visual [Unknown]
  - Depression [Unknown]
  - Cerebral artery occlusion [Unknown]
  - Cognitive disorder [Unknown]
  - Sleep apnoea syndrome [Unknown]
  - Hypersomnia [Unknown]
  - Erythema multiforme [Unknown]
  - Anaphylactic reaction [Unknown]
  - Atelectasis [Unknown]
  - Amnesia [Unknown]
  - Confusional state [Unknown]
  - Suicidal ideation [Unknown]
  - Meniscus injury [Unknown]
  - Hypercholesterolaemia [Unknown]
  - Deep vein thrombosis [Unknown]
  - Osteoarthritis [Unknown]
  - Chest pain [Unknown]
  - Haemorrhoids [Unknown]
  - Urinary incontinence [Unknown]
  - Hypertension [Unknown]
  - Hemiparesis [Unknown]
  - Cellulitis [Unknown]
  - Dyspnoea [Unknown]
  - Hypotension [Unknown]
